FAERS Safety Report 9975953 (Version 2)
Quarter: 2014Q1

REPORT INFORMATION
  Report Type: Spontaneous
  Country: JP (occurrence: JP)
  Receive Date: 20140306
  Receipt Date: 20140307
  Transmission Date: 20141002
  Serious: Yes (Other)
  Sender: FDA-Public Use
  Company Number: JP-PFIZER INC-2014063401

PATIENT
  Age: 75 Year
  Sex: Male

DRUGS (2)
  1. JZOLOFT [Suspect]
     Dosage: 75 MG, DAILY
     Route: 048
  2. JZOLOFT [Suspect]
     Dosage: 50 MG, DAILY BEFORE BEDTIME
     Route: 048

REACTIONS (1)
  - Atonic seizures [Unknown]
